FAERS Safety Report 19282499 (Version 3)
Quarter: 2021Q2

REPORT INFORMATION
  Report Type: Report from Study
  Country: None (occurrence: US)
  Receive Date: 20210520
  Receipt Date: 20210526
  Transmission Date: 20210717
  Serious: Yes (Hospitalization, Other)
  Sender: FDA-Public Use
  Company Number: US-ABBVIE-21K-163-3913252-00

PATIENT
  Age: 91 Year
  Sex: Female
  Weight: 45.4 kg

DRUGS (5)
  1. METOPROLOL. [Concomitant]
     Active Substance: METOPROLOL
     Indication: HYPERTENSION
  2. OMEPRAZOLE. [Concomitant]
     Active Substance: OMEPRAZOLE
     Indication: GASTROOESOPHAGEAL REFLUX DISEASE
  3. HUMIRA [Suspect]
     Active Substance: ADALIMUMAB
     Indication: PSORIASIS
     Dosage: CITRATE FREE DAY 8
     Route: 058
     Dates: start: 20210408
  4. AMLODIPINE [Concomitant]
     Active Substance: AMLODIPINE BESYLATE
     Indication: HYPERTENSION
  5. HUMIRA [Suspect]
     Active Substance: ADALIMUMAB
     Indication: PSORIASIS
     Dosage: CITRATE FREE?DAY 1
     Route: 058
     Dates: start: 20210401, end: 20210401

REACTIONS (7)
  - Urinary tract infection [Recovering/Resolving]
  - Hypoacusis [Not Recovered/Not Resolved]
  - Skin haemorrhage [Unknown]
  - Pruritus [Unknown]
  - Renal mass [Not Recovered/Not Resolved]
  - Ear infection [Unknown]
  - Urinary tract obstruction [Unknown]

NARRATIVE: CASE EVENT DATE: 2021
